FAERS Safety Report 12359763 (Version 1)
Quarter: 2016Q2

REPORT INFORMATION
  Report Type: Spontaneous
  Country: US (occurrence: None)
  Receive Date: 20160511
  Receipt Date: 20160511
  Transmission Date: 20160815
  Serious: No
  Sender: FDA-Public Use
  Company Number: None

PATIENT
  Age: 56 Year
  Sex: Male

DRUGS (1)
  1. SIMPONI [Suspect]
     Active Substance: GOLIMUMAB
     Indication: COLITIS ULCERATIVE
     Dosage: 100 MG Q4 SUB-Q
     Route: 058

REACTIONS (3)
  - Limb discomfort [None]
  - Weight increased [None]
  - Asthenia [None]

NARRATIVE: CASE EVENT DATE: 20160413
